FAERS Safety Report 7728612-8 (Version None)
Quarter: 2011Q3

REPORT INFORMATION
  Report Type: 
  Country: None (occurrence: None)
  Receive Date: 20110831
  Receipt Date: 20110831
  Transmission Date: 20111222
  Serious: No
  Sender: FDA-Public Use
  Company Number: None

PATIENT

DRUGS (1)
  1. ETODOLAC [Suspect]
     Dates: start: 20100405, end: 20100408

REACTIONS (3)
  - RENAL IMPAIRMENT [None]
  - BLOOD GLUCOSE INCREASED [None]
  - ANAEMIA [None]
